FAERS Safety Report 25265956 (Version 2)
Quarter: 2025Q2

REPORT INFORMATION
  Report Type: Spontaneous
  Country: US (occurrence: US)
  Receive Date: 20250504
  Receipt Date: 20250612
  Transmission Date: 20250717
  Serious: No
  Sender: DIFGEN PHARMACEUTICALS LLC
  Company Number: US-Difgen-011995

PATIENT
  Sex: Female

DRUGS (3)
  1. BUPRENORPHINE [Suspect]
     Active Substance: BUPRENORPHINE
     Indication: Complex regional pain syndrome
     Route: 062
  2. BUPRENORPHINE [Suspect]
     Active Substance: BUPRENORPHINE
     Indication: Complex regional pain syndrome
     Route: 062
  3. BUPRENORPHINE [Suspect]
     Active Substance: BUPRENORPHINE
     Indication: Complex regional pain syndrome
     Route: 062

REACTIONS (4)
  - Application site vesicles [Unknown]
  - Application site erythema [Unknown]
  - Application site pruritus [Unknown]
  - Application site pain [Unknown]
